FAERS Safety Report 5557617-0 (Version None)
Quarter: 2007Q4

REPORT INFORMATION
  Report Type: 
  Country: None (occurrence: None)
  Receive Date: 20071214
  Receipt Date: 20071210
  Transmission Date: 20080405
  Serious: Yes (Hospitalization)
  Sender: FDA-Public Use
  Company Number: B0493774A

PATIENT
  Age: 40 Year
  Sex: Male

DRUGS (6)
  1. AMOXICILLIN [Suspect]
     Indication: PROPHYLAXIS
     Dosage: 1G TWICE PER DAY
     Route: 065
     Dates: start: 20070509, end: 20070514
  2. CELESTONE [Suspect]
     Indication: PREMEDICATION
     Dosage: 2MG TWICE PER DAY
     Route: 065
     Dates: start: 20070509, end: 20070514
  3. PROPOFAN [Suspect]
     Indication: ANAESTHETIC PREMEDICATION
     Route: 048
     Dates: start: 20070509, end: 20070512
  4. ATARAX [Concomitant]
     Indication: PRURITUS
     Route: 065
     Dates: start: 20070430, end: 20070505
  5. KESTIN [Concomitant]
     Indication: PRURITUS
     Route: 065
     Dates: start: 20070430, end: 20070505
  6. SOLUPRED [Concomitant]
     Indication: PRURITUS
     Dosage: 40MG PER DAY
     Route: 065
     Dates: start: 20070505, end: 20070508

REACTIONS (9)
  - ACUTE GENERALISED EXANTHEMATOUS PUSTULOSIS [None]
  - CONJUNCTIVITIS [None]
  - EYELID OEDEMA [None]
  - FACE OEDEMA [None]
  - PYREXIA [None]
  - RASH [None]
  - RASH ERYTHEMATOUS [None]
  - RASH PUSTULAR [None]
  - SKIN DISORDER [None]
